FAERS Safety Report 14899185 (Version 3)
Quarter: 2019Q1

REPORT INFORMATION
  Report Type: Spontaneous
  Country: TH (occurrence: TH)
  Receive Date: 20180516
  Receipt Date: 20190326
  Transmission Date: 20190417
  Serious: Yes (Death, Hospitalization, Other)
  Sender: FDA-Public Use
  Company Number: TH-ASTELLAS-2018US022491

PATIENT
  Sex: Male

DRUGS (2)
  1. XTANDI [Suspect]
     Active Substance: ENZALUTAMIDE
     Route: 048
     Dates: start: 20180521, end: 20180821
  2. XTANDI [Suspect]
     Active Substance: ENZALUTAMIDE
     Indication: HORMONE-REFRACTORY PROSTATE CANCER
     Route: 048
     Dates: start: 201804

REACTIONS (6)
  - Malignant neoplasm progression [Unknown]
  - Lung infection [Unknown]
  - Cystitis [Unknown]
  - Death [Fatal]
  - Influenza [Unknown]
  - Metastasis [Unknown]
